FAERS Safety Report 23402690 (Version 3)
Quarter: 2024Q2

REPORT INFORMATION
  Report Type: Report from Study
  Country: US (occurrence: US)
  Receive Date: 20240115
  Receipt Date: 20240429
  Transmission Date: 20240716
  Serious: No
  Sender: FDA-Public Use
  Company Number: US-AstraZeneca-CH-00542152A

PATIENT
  Sex: Male

DRUGS (1)
  1. ULTOMIRIS [Suspect]
     Active Substance: RAVULIZUMAB-CWVZ
     Indication: Myasthenia gravis
     Dosage: UNK
     Route: 065
     Dates: start: 20240105

REACTIONS (10)
  - Dysgeusia [Unknown]
  - Abdominal discomfort [Unknown]
  - Muscular weakness [Not Recovered/Not Resolved]
  - Nasal congestion [Unknown]
  - Wheezing [Unknown]
  - Nausea [Unknown]
  - Fatigue [Unknown]
  - Asthenia [Unknown]
  - Back pain [Unknown]
  - Neck pain [Not Recovered/Not Resolved]
